FAERS Safety Report 4982485-5 (Version None)
Quarter: 2006Q2

REPORT INFORMATION
  Report Type: 
  Country: None (occurrence: None)
  Receive Date: 20060419
  Receipt Date: 20060410
  Transmission Date: 20061013
  Serious: Yes (Hospitalization)
  Sender: FDA-Public Use
  Company Number: 2006050305

PATIENT
  Sex: Male
  Weight: 81.1939 kg

DRUGS (10)
  1. NEURONTIN [Suspect]
     Indication: DIABETIC NEUROPATHY
     Dosage: 800 MG (800 MG, 1 IN 1D)
  2. LYRICA [Suspect]
     Indication: DIABETIC NEUROPATHY
     Dosage: 600 MG (200 MG, 3 IN 1 D)
     Dates: start: 20060101
  3. IBUPROFEN [Concomitant]
  4. BENICAR [Concomitant]
  5. NORVASC [Concomitant]
  6. PLAVIX [Concomitant]
  7. LIPITOR [Concomitant]
  8. THYROID TAB [Concomitant]
  9. ZOLOFT [Concomitant]
  10. PREVACID [Concomitant]

REACTIONS (8)
  - ARTERIAL OCCLUSIVE DISEASE [None]
  - BLOOD GLUCOSE INCREASED [None]
  - CLUMSINESS [None]
  - COUGH [None]
  - DRUG INEFFECTIVE [None]
  - LUNG INFECTION [None]
  - NEURALGIA [None]
  - PYREXIA [None]
